FAERS Safety Report 18546856 (Version 1)
Quarter: 2020Q4

REPORT INFORMATION
  Report Type: Spontaneous
  Country: DE (occurrence: DE)
  Receive Date: 20201125
  Receipt Date: 20201125
  Transmission Date: 20210114
  Serious: Yes (Other)
  Sender: FDA-Public Use
  Company Number: NVSC2020DE310715

PATIENT
  Age: 63 Year
  Sex: Female

DRUGS (1)
  1. MAYZENT [Suspect]
     Active Substance: SIPONIMOD
     Indication: MULTIPLE SCLEROSIS
     Dosage: 2 MG
     Route: 065
     Dates: start: 202007

REACTIONS (3)
  - Urinary tract infection [Unknown]
  - Multiple sclerosis [Unknown]
  - Paraparesis [Unknown]

NARRATIVE: CASE EVENT DATE: 2020
